FAERS Safety Report 12555960 (Version 1)
Quarter: 2016Q3

REPORT INFORMATION
  Report Type: Spontaneous
  Country: US (occurrence: None)
  Receive Date: 20160713
  Receipt Date: 20160713
  Transmission Date: 20161109
  Serious: Yes (Hospitalization)
  Sender: FDA-Public Use
  Company Number: None

PATIENT
  Age: 46 Year
  Sex: Female
  Weight: 67.13 kg

DRUGS (12)
  1. METFORMIN [Concomitant]
     Active Substance: METFORMIN HYDROCHLORIDE
  2. VITAMIN D3 [Concomitant]
     Active Substance: CHOLECALCIFEROL
  3. SOLU-MEDROL [Suspect]
     Active Substance: METHYLPREDNISOLONE SODIUM SUCCINATE
     Route: 042
     Dates: start: 20150119, end: 20150121
  4. GABAPENTIN. [Concomitant]
     Active Substance: GABAPENTIN
  5. PROVIGIL [Concomitant]
     Active Substance: MODAFINIL
  6. ACYCLOVIR. [Concomitant]
     Active Substance: ACYCLOVIR
  7. ASPIRIN. [Concomitant]
     Active Substance: ASPIRIN
  8. METOPROLOL. [Concomitant]
     Active Substance: METOPROLOL
  9. ZOFRAN [Concomitant]
     Active Substance: ONDANSETRON HYDROCHLORIDE
  10. ALEMTUZUMAB GENZYME [Suspect]
     Active Substance: ALEMTUZUMAB
     Indication: MULTIPLE SCLEROSIS
     Route: 042
     Dates: start: 20150119, end: 20150121
  11. LANTUS [Concomitant]
     Active Substance: INSULIN GLARGINE
  12. TIZANIDINE. [Concomitant]
     Active Substance: TIZANIDINE

REACTIONS (6)
  - Histoplasmosis disseminated [None]
  - Chest pain [None]
  - Pyrexia [None]
  - Cough [None]
  - Decreased appetite [None]
  - Dyspnoea [None]

NARRATIVE: CASE EVENT DATE: 20160526
